FAERS Safety Report 20871255 (Version 6)
Quarter: 2022Q2

REPORT INFORMATION
  Report Type: Spontaneous
  Country: DE (occurrence: DE)
  Receive Date: 20220525
  Receipt Date: 20220622
  Transmission Date: 20220721
  Serious: Yes (Hospitalization, Other)
  Sender: FDA-Public Use
  Company Number: DE-PFIZER INC-202200051279

PATIENT
  Age: 8 Day
  Sex: Female

DRUGS (15)
  1. VORICONAZOLE [Suspect]
     Active Substance: VORICONAZOLE
     Indication: Trichosporon infection
     Dosage: 9 MG/KG, DAILY (Q12, DOSE MODIFICATION)
  2. VORICONAZOLE [Suspect]
     Active Substance: VORICONAZOLE
     Indication: Aspergillus infection
     Dosage: 6 MG/KG, DAILY (Q12, LOADING DOSE, D1)
  3. VORICONAZOLE [Suspect]
     Active Substance: VORICONAZOLE
     Dosage: 4 MG/KG, DAILY (Q12, FROM DAY 2)
  4. VORICONAZOLE [Suspect]
     Active Substance: VORICONAZOLE
     Dosage: 16 MILLIGRAM/KILOGRAM (12 HRS)
  5. VORICONAZOLE [Suspect]
     Active Substance: VORICONAZOLE
     Dosage: UNK
  6. BETAMETHASONE [Suspect]
     Active Substance: BETAMETHASONE
     Indication: Product used for unknown indication
     Dosage: UNK
     Route: 064
  7. HYDROCORTISONE [Suspect]
     Active Substance: HYDROCORTISONE
     Indication: Hypotension
     Dosage: UNK
  8. POSACONAZOLE [Concomitant]
     Active Substance: POSACONAZOLE
     Indication: Trichosporon infection
     Dosage: 10 MILLIGRAM/KILOGRAM, QD (5 MG/KG, 2X/DAY)
  9. POSACONAZOLE [Concomitant]
     Active Substance: POSACONAZOLE
     Dosage: 14 MILLIGRAM/KILOGRAM, QD (7 MG/KG, 2X/DAY)
  10. AMPHOTERICIN B [Concomitant]
     Active Substance: AMPHOTERICIN B
     Indication: Trichosporon infection
     Dosage: UNK (FIRST-LINE TREATMENT)
  11. AMPHOTERICIN B [Concomitant]
     Active Substance: AMPHOTERICIN B
     Indication: Aspergillus infection
     Dosage: UNK
  12. HYDROCORTISONE [Concomitant]
     Active Substance: HYDROCORTISONE
     Indication: Hypotension
     Dosage: UNK (POSTNATAL, WITHIN FIRST WEEKS OF LIFE)
  13. HYDROCORTISONE [Concomitant]
     Active Substance: HYDROCORTISONE
     Dosage: UNK
  14. AMPHOTERICIN B [Concomitant]
     Active Substance: AMPHOTERICIN B
     Indication: Aspergillus infection
     Dosage: UNK (FIRST-LINE TREATMENT)
  15. AMPHOTERICIN B [Concomitant]
     Active Substance: AMPHOTERICIN B
     Indication: Trichosporon infection

REACTIONS (5)
  - Trichosporon infection [Recovered/Resolved]
  - Foetal exposure during pregnancy [Recovered/Resolved]
  - Drug-induced liver injury [Unknown]
  - Hepatotoxicity [Recovered/Resolved]
  - Product use issue [Unknown]
